FAERS Safety Report 24529887 (Version 3)
Quarter: 2025Q3

REPORT INFORMATION
  Report Type: Spontaneous
  Country: EU (occurrence: EU)
  Receive Date: 20241021
  Receipt Date: 20250929
  Transmission Date: 20251021
  Serious: Yes (Hospitalization, Other)
  Sender: INCYTE
  Company Number: EU-002147023-NVSC2024DE203450

PATIENT
  Age: 68 Year

DRUGS (3)
  1. RUXOLITINIB [Suspect]
     Active Substance: RUXOLITINIB
     Indication: Product used for unknown indication
     Dosage: 5 MG, BID, (2X TABLETS IN THE MORNING)
     Route: 065
  2. RUXOLITINIB [Suspect]
     Active Substance: RUXOLITINIB
     Dosage: 15 MG, BID, (5 MG IN THE MORNING AND 10 MG IN THE EVENING)
     Route: 065
  3. RUXOLITINIB [Suspect]
     Active Substance: RUXOLITINIB
     Dosage: 5 MG (2X)
     Route: 065

REACTIONS (16)
  - Drug level increased [Unknown]
  - Constipation [Unknown]
  - Myalgia [Not Recovered/Not Resolved]
  - Cervix carcinoma [Unknown]
  - Second primary malignancy [Unknown]
  - Paraesthesia [Not Recovered/Not Resolved]
  - Platelet count increased [Unknown]
  - Cystitis escherichia [Unknown]
  - Headache [Recovering/Resolving]
  - Incorrect dose administered [Unknown]
  - Drug intolerance [Unknown]
  - Mucosal dryness [Recovering/Resolving]
  - Nausea [Recovering/Resolving]
  - Arthralgia [Recovering/Resolving]
  - Dehydration [Recovering/Resolving]
  - Asthenia [Not Recovered/Not Resolved]
